FAERS Safety Report 4795716-1 (Version None)
Quarter: 2005Q3

REPORT INFORMATION
  Report Type: 
  Country: None (occurrence: None)
  Receive Date: 20050929
  Receipt Date: 20050725
  Transmission Date: 20060218
  Serious: No
  Sender: FDA-Public Use
  Company Number: 05P-163-0306527-00

PATIENT
  Age: 44 Year
  Sex: Female

DRUGS (8)
  1. HUMIRA [Suspect]
     Indication: RHEUMATOID ARTHRITIS
     Dosage: 40 MG, 1 IN 2 WK, SUBCUTANEOUS
     Route: 058
     Dates: start: 20030101
  2. SYMBALTA [Concomitant]
  3. OBETROL [Concomitant]
  4. MODAFINIL [Concomitant]
  5. LORAZEPAM [Concomitant]
  6. VALPROATE SODIUM [Concomitant]
  7. TIAGABINE HYDROCHLORIDE [Concomitant]
  8. VICODIN [Concomitant]

REACTIONS (1)
  - PROCEDURAL COMPLICATION [None]
